FAERS Safety Report 22204101 (Version 4)
Quarter: 2024Q2

REPORT INFORMATION
  Report Type: Spontaneous
  Country: US (occurrence: US)
  Receive Date: 20230412
  Receipt Date: 20240628
  Transmission Date: 20240717
  Serious: Yes (Other)
  Sender: FDA-Public Use
  Company Number: US-PFIZER INC-PV202300065419

PATIENT
  Age: 69 Year
  Sex: Male
  Weight: 92.52 kg

DRUGS (1)
  1. XELJANZ XR [Suspect]
     Active Substance: TOFACITINIB CITRATE
     Indication: Rheumatoid arthritis
     Dosage: 11 MG, DAILY

REACTIONS (7)
  - Deep vein thrombosis [Unknown]
  - Neoplasm malignant [Recovered/Resolved]
  - Renal cancer [Recovered/Resolved]
  - Hypertension [Unknown]
  - Neck mass [Unknown]
  - Overweight [Unknown]
  - Oropharyngeal pain [Unknown]
